FAERS Safety Report 6827288 (Version 1)
Quarter: 2020Q3

REPORT INFORMATION
  Report Type: Report from Study
  Country: GR (occurrence: GR)
  Receive Date: 20081201
  Receipt Date: 20081201
  Transmission Date: 20201105
  Serious: Yes (Death)
  Sender: FDA-Public Use
  Company Number: GR-ROCHE-597876

PATIENT

DRUGS (1)
  1. IBANDRONIC ACID. [Suspect]
     Active Substance: IBANDRONIC ACID
     Dosage: BEFORE BREAKFAST
     Route: 048

REACTIONS (1)
  - Death [Fatal]
